FAERS Safety Report 23646197 (Version 1)
Quarter: 2024Q1

REPORT INFORMATION
  Report Type: Spontaneous
  Country: CA (occurrence: None)
  Receive Date: 20240319
  Receipt Date: 20240319
  Transmission Date: 20240410
  Serious: Yes (Other)
  Sender: FDA-Public Use
  Company Number: 2024A062242

PATIENT
  Age: 42 Year
  Sex: Female

DRUGS (18)
  1. QUETIAPINE FUMARATE [Suspect]
     Active Substance: QUETIAPINE FUMARATE
     Route: 048
  2. CIPROFLOXACIN [Suspect]
     Active Substance: CIPROFLOXACIN
     Indication: Urinary tract infection
     Dosage: 500.0MG UNKNOWN
  3. COSENTYX [Suspect]
     Active Substance: SECUKINUMAB
     Indication: Product used for unknown indication
  4. HYDROCORTISONE [Suspect]
     Active Substance: HYDROCORTISONE
     Indication: Product used for unknown indication
  5. VENLAFAXINE [Suspect]
     Active Substance: VENLAFAXINE HYDROCHLORIDE
     Indication: Product used for unknown indication
     Dosage: 225.0MG UNKNOWN
     Route: 048
  6. AMITRIPTYLINE [Concomitant]
     Active Substance: AMITRIPTYLINE
     Indication: Product used for unknown indication
  7. CANNABIS SATIVA FLOWERING TOP [Concomitant]
     Active Substance: CANNABIS SATIVA FLOWERING TOP
     Indication: Pain
  8. CERTOLIZUMAB PEGOL [Concomitant]
     Active Substance: CERTOLIZUMAB PEGOL
     Indication: Product used for unknown indication
  9. CIMZIA [Concomitant]
     Active Substance: CERTOLIZUMAB PEGOL
     Indication: Product used for unknown indication
  10. CIPROFLOXACIN LACTATE [Concomitant]
     Active Substance: CIPROFLOXACIN LACTATE
     Indication: Urinary tract infection
     Dosage: 500.0MG UNKNOWN
     Route: 048
  11. DESOXIMETASONE\NEOMYCIN SULFATE [Concomitant]
     Active Substance: DESOXIMETASONE\NEOMYCIN SULFATE
     Indication: Urinary tract infection
  12. DILAUDID [Concomitant]
     Active Substance: HYDROMORPHONE HYDROCHLORIDE
     Indication: Product used for unknown indication
     Route: 048
  13. HYDROXYCHLOROQUINE [Concomitant]
     Active Substance: HYDROXYCHLOROQUINE
     Indication: Product used for unknown indication
  14. METHOTREXATE SODIUM [Concomitant]
     Active Substance: METHOTREXATE SODIUM
     Indication: Product used for unknown indication
  15. PLAQUENIL [Concomitant]
     Active Substance: HYDROXYCHLOROQUINE SULFATE
     Indication: Product used for unknown indication
  16. SEMAGLUTIDE [Concomitant]
     Active Substance: SEMAGLUTIDE
     Indication: Weight increased
     Route: 058
  17. STATEX [Concomitant]
     Indication: Product used for unknown indication
     Route: 048
  18. SULFASALAZINE [Concomitant]
     Active Substance: SULFASALAZINE
     Indication: Product used for unknown indication

REACTIONS (20)
  - Abdominal pain lower [Unknown]
  - Arthralgia [Unknown]
  - Back pain [Unknown]
  - Balance disorder [Unknown]
  - Bronchitis [Unknown]
  - Faeces discoloured [Unknown]
  - Gait disturbance [Unknown]
  - Hyperhidrosis [Unknown]
  - Hypoaesthesia [Unknown]
  - Migraine [Unknown]
  - Muscular weakness [Unknown]
  - Nausea [Unknown]
  - Pollakiuria [Unknown]
  - Vomiting [Unknown]
  - Productive cough [Unknown]
  - Dyspnoea [Unknown]
  - Rash macular [Unknown]
  - Drug ineffective [Unknown]
  - Weight decreased [Unknown]
  - Product dose omission issue [Unknown]
